FAERS Safety Report 11648828 (Version 1)
Quarter: 2015Q4

REPORT INFORMATION
  Report Type: Spontaneous
  Country: US (occurrence: US)
  Receive Date: 20151021
  Receipt Date: 20151021
  Transmission Date: 20160304
  Serious: Yes (Other)
  Sender: FDA-Public Use
  Company Number: US-GILEAD-2015-0177218

PATIENT
  Age: 68 Year
  Sex: Female

DRUGS (4)
  1. ANTIVERT                           /00072802/ [Concomitant]
  2. METOPROLOL [Concomitant]
     Active Substance: METOPROLOL
  3. VALIUM [Concomitant]
     Active Substance: DIAZEPAM
  4. RANEXA [Suspect]
     Active Substance: RANOLAZINE
     Indication: ANGINA PECTORIS
     Dosage: UNK
     Route: 065

REACTIONS (6)
  - Tinnitus [Unknown]
  - Tremor [Unknown]
  - Type 2 diabetes mellitus [Unknown]
  - Heart rate increased [Unknown]
  - Angina pectoris [Unknown]
  - Dry mouth [Unknown]
